FAERS Safety Report 12172453 (Version 5)
Quarter: 2016Q2

REPORT INFORMATION
  Report Type: Report from Study
  Country: ES (occurrence: ES)
  Receive Date: 20160311
  Receipt Date: 20160601
  Transmission Date: 20160815
  Serious: Yes (Hospitalization, Other)
  Sender: FDA-Public Use
  Company Number: ES-ABBVIE-16P-144-1575960-00

PATIENT
  Age: 84 Year
  Sex: Female

DRUGS (1)
  1. DUODOPA [Suspect]
     Active Substance: CARBIDOPA\LEVODOPA
     Indication: PARKINSON^S DISEASE
     Route: 050
     Dates: start: 201109

REACTIONS (6)
  - Stoma site erythema [Recovering/Resolving]
  - Intestinal obstruction [Not Recovered/Not Resolved]
  - Stoma site discharge [Recovering/Resolving]
  - Gastrointestinal infection [Not Recovered/Not Resolved]
  - Infection [Recovering/Resolving]
  - Gastrointestinal necrosis [Unknown]

NARRATIVE: CASE EVENT DATE: 20160229
